FAERS Safety Report 7823643-1 (Version None)
Quarter: 2011Q4

REPORT INFORMATION
  Report Type: 
  Country: None (occurrence: None)
  Receive Date: 20111019
  Receipt Date: 20111019
  Transmission Date: 20120403
  Serious: Yes (Hospitalization)
  Sender: FDA-Public Use
  Company Number: None

PATIENT
  Age: 32 Year
  Sex: Female
  Weight: 73.481 kg

DRUGS (6)
  1. SINGULAIR [Concomitant]
  2. LAMISIL [Suspect]
     Indication: ONYCHOMYCOSIS
     Dosage: PILL
     Route: 048
     Dates: start: 20110707, end: 20110717
  3. LAMISIL [Suspect]
     Indication: TINEA PEDIS
     Dosage: PILL
     Route: 048
     Dates: start: 20110707, end: 20110717
  4. PROZAC [Concomitant]
     Route: 048
  5. LEVATHROID [Concomitant]
     Route: 048
  6. FLONASE [Concomitant]

REACTIONS (1)
  - HEPATIC STEATOSIS [None]
